FAERS Safety Report 21483193 (Version 2)
Quarter: 2022Q4

REPORT INFORMATION
  Report Type: Report from Study
  Country: CA (occurrence: CA)
  Receive Date: 20221020
  Receipt Date: 20221214
  Transmission Date: 20230113
  Serious: Yes (Other)
  Sender: FDA-Public Use
  Company Number: CA-JNJFOC-20221029421

PATIENT
  Age: 32 Year
  Sex: Female

DRUGS (1)
  1. REMICADE [Suspect]
     Active Substance: INFLIXIMAB
     Indication: Crohn^s disease
     Dosage: STRENGTH: 400 MG
     Route: 041

REACTIONS (7)
  - Rectal haemorrhage [Not Recovered/Not Resolved]
  - Candida infection [Recovered/Resolved]
  - Nasopharyngitis [Recovered/Resolved]
  - Decreased appetite [Unknown]
  - Vomiting [Not Recovered/Not Resolved]
  - Nausea [Not Recovered/Not Resolved]
  - Back pain [Unknown]

NARRATIVE: CASE EVENT DATE: 20220201
